FAERS Safety Report 4883803-9 (Version None)
Quarter: 2006Q1

REPORT INFORMATION
  Report Type: 
  Country: None (occurrence: None)
  Receive Date: 20060113
  Receipt Date: 20051229
  Transmission Date: 20060701
  Serious: Yes (Hospitalization, Other)
  Sender: FDA-Public Use
  Company Number: USA0510109782

PATIENT
  Age: 9 Year
  Sex: Male
  Weight: 34.2466 kg

DRUGS (1)
  1. STRATTERA [Suspect]
     Indication: ATTENTION DEFICIT/HYPERACTIVITY DISORDER
     Dosage: 18 MG DAILY (1/D)
     Dates: start: 20050325, end: 20050508

REACTIONS (4)
  - ANOREXIA [None]
  - APPENDICITIS [None]
  - SEROSITIS [None]
  - URINARY RETENTION [None]
